FAERS Safety Report 7540944-5 (Version None)
Quarter: 2011Q2

REPORT INFORMATION
  Report Type: 
  Country: None (occurrence: None)
  Receive Date: 20110610
  Receipt Date: 20110603
  Transmission Date: 20111010
  Serious: No
  Sender: FDA-Public Use
  Company Number: US-PFIZER INC-2011102137

PATIENT
  Sex: Male

DRUGS (1)
  1. TIKOSYN [Suspect]
     Dosage: UNK

REACTIONS (6)
  - CONSTIPATION [None]
  - NERVOUSNESS [None]
  - FATIGUE [None]
  - OEDEMA PERIPHERAL [None]
  - RASH [None]
  - FEELING ABNORMAL [None]
